FAERS Safety Report 9580701 (Version 1)
Quarter: 2013Q3

REPORT INFORMATION
  Report Type: Spontaneous
  Country: US (occurrence: None)
  Receive Date: 20130916
  Receipt Date: 20130916
  Transmission Date: 20140515
  Serious: Yes (Other)
  Sender: FDA-Public Use
  Company Number: JPI-P-027077

PATIENT
  Age: 31 Year
  Sex: Female

DRUGS (3)
  1. XYREM [Suspect]
     Indication: SOMNOLENCE
     Dosage: 4.5GM (2.25GM, 2 IN 1D) ORAL
     Route: 048
     Dates: start: 20120410
  2. PROPRANOLOL [Concomitant]
  3. ALPRAZOLAM [Concomitant]

REACTIONS (11)
  - Blood pressure increased [None]
  - Peripheral vascular disorder [None]
  - Therapeutic response decreased [None]
  - Poor peripheral circulation [None]
  - Body temperature decreased [None]
  - Chest pain [None]
  - Feeling cold [None]
  - Heart rate increased [None]
  - Dyspnoea [None]
  - Oedema peripheral [None]
  - Feeling abnormal [None]
